FAERS Safety Report 10311057 (Version 1)
Quarter: 2014Q3

REPORT INFORMATION
  Report Type: Spontaneous
  Country: GB (occurrence: GB)
  Receive Date: 20140717
  Receipt Date: 20140717
  Transmission Date: 20150326
  Serious: Yes (Life-Threatening, Hospitalization, Other)
  Sender: FDA-Public Use
  Company Number: GB-PFIZER INC-2014198368

PATIENT
  Age: 39 Year
  Sex: Male
  Weight: 60 kg

DRUGS (11)
  1. MYCOPHENOLATE MOFETIL. [Suspect]
     Active Substance: MYCOPHENOLATE MOFETIL
     Indication: RENAL TRANSPLANT
     Dosage: 1 G, UNK (1, G GRAM(S), 2, 1, DAYS)
     Route: 048
     Dates: start: 20140603, end: 20140606
  2. SIMVASTATIN. [Concomitant]
     Active Substance: SIMVASTATIN
  3. OMEPRAZOLE. [Suspect]
     Active Substance: OMEPRAZOLE
     Indication: PROPHYLAXIS
     Dosage: 20 MG, UNK ( 20, MG MILLIGRAM(S), 1, 1, DAYS)
     Route: 048
     Dates: start: 20140603, end: 20140606
  4. HYDROCORTISONE. [Concomitant]
     Active Substance: HYDROCORTISONE
  5. PREDNISOLONE ACETATE. [Suspect]
     Active Substance: PREDNISOLONE ACETATE
     Indication: RENAL TRANSPLANT
     Dosage: 20 MG, UNK (20, MG MILLIGRAM(S), 1, 1, DAYS
     Route: 048
     Dates: start: 20140603, end: 20140606
  6. FUROSEMIDE. [Concomitant]
     Active Substance: FUROSEMIDE
  7. IRBESARTAN. [Concomitant]
     Active Substance: IRBESARTAN
  8. SODIUM VALPROATE [Concomitant]
     Active Substance: VALPROATE SODIUM
  9. TESTOGEL [Concomitant]
     Active Substance: TESTOSTERONE
  10. LEVOTHYROXINE [Concomitant]
     Active Substance: LEVOTHYROXINE
  11. PROGRAF [Suspect]
     Active Substance: TACROLIMUS\TACROLIMUS ANHYDROUS
     Indication: RENAL TRANSPLANT
     Dosage: 1.5 MG, UNK (1.5, MG MILLIGRAM(S), 2, 1, DAYS)
     Route: 048
     Dates: start: 20140603, end: 20140606

REACTIONS (2)
  - Blood creatine increased [Unknown]
  - Pancreatitis acute [Recovering/Resolving]

NARRATIVE: CASE EVENT DATE: 20140606
